FAERS Safety Report 5802396-2 (Version None)
Quarter: 2008Q3

REPORT INFORMATION
  Report Type: 
  Country: None (occurrence: None)
  Receive Date: 20080707
  Receipt Date: 20080627
  Transmission Date: 20090109
  Serious: Yes (Hospitalization, Other)
  Sender: FDA-Public Use
  Company Number: US-MERCK-0804USA03000

PATIENT
  Age: 39 Year
  Sex: Female

DRUGS (1)
  1. FOSAMAX [Suspect]
     Indication: OSTEOPENIA
     Route: 048
     Dates: start: 20031016, end: 20050201

REACTIONS (17)
  - ARTHRALGIA [None]
  - AUTONOMIC NERVOUS SYSTEM IMBALANCE [None]
  - BACK PAIN [None]
  - BLOOD DISORDER [None]
  - BRONCHITIS [None]
  - FALL [None]
  - FIBROMYALGIA [None]
  - GALLBLADDER DISORDER [None]
  - HYPOAESTHESIA TEETH [None]
  - JAW DISORDER [None]
  - JAW FRACTURE [None]
  - OSTEONECROSIS [None]
  - OSTEOPOROSIS [None]
  - PHARYNGITIS [None]
  - SPINAL DISORDER [None]
  - TRISMUS [None]
  - VAGINAL DISORDER [None]
